FAERS Safety Report 25100368 (Version 1)
Quarter: 2025Q1

REPORT INFORMATION
  Report Type: Spontaneous
  Country: US (occurrence: None)
  Receive Date: 20250319
  Receipt Date: 20250319
  Transmission Date: 20250408
  Serious: Yes (Life-Threatening)
  Sender: FDA-CTU
  Company Number: None

PATIENT
  Age: 73 Year
  Sex: Male
  Weight: 75 kg

DRUGS (1)
  1. INSULIN NOS [Suspect]
     Active Substance: INSULIN NOS

REACTIONS (2)
  - Hypoglycaemia [None]
  - Infusion related reaction [None]

NARRATIVE: CASE EVENT DATE: 20250302
